FAERS Safety Report 13321950 (Version 1)
Quarter: 2017Q1

REPORT INFORMATION
  Report Type: Spontaneous
  Country: US (occurrence: US)
  Receive Date: 20170310
  Receipt Date: 20170310
  Transmission Date: 20170428
  Serious: Yes (Hospitalization)
  Sender: FDA-Public Use
  Company Number: None

PATIENT
  Age: 63 Year
  Sex: Female
  Weight: 60.6 kg

DRUGS (1)
  1. TEMOZOLOMIDE. [Suspect]
     Active Substance: TEMOZOLOMIDE
     Dates: end: 20170210

REACTIONS (5)
  - Seizure [None]
  - Hypoaesthesia [None]
  - Nuclear magnetic resonance imaging brain abnormal [None]
  - Tremor [None]
  - Oedema [None]

NARRATIVE: CASE EVENT DATE: 20170223
